FAERS Safety Report 13352593 (Version 1)
Quarter: 2017Q1

REPORT INFORMATION
  Report Type: Spontaneous
  Country: US (occurrence: US)
  Receive Date: 20170320
  Receipt Date: 20170320
  Transmission Date: 20170429
  Serious: Yes (Other)
  Sender: FDA-Public Use
  Company Number: US-CELGENEUS-USA-2017035392

PATIENT
  Sex: Male
  Weight: 108.96 kg

DRUGS (5)
  1. GINSENG [Concomitant]
     Active Substance: ASIAN GINSENG
     Indication: PRODUCT USED FOR UNKNOWN INDICATION
     Dosage: 250 MILLIGRAM
     Route: 065
  2. ASPIRIN. [Concomitant]
     Active Substance: ASPIRIN
     Indication: PRODUCT USED FOR UNKNOWN INDICATION
     Dosage: 81 MILLIGRAM
     Route: 065
  3. DEXAMETHASONE. [Concomitant]
     Active Substance: DEXAMETHASONE
     Indication: PRODUCT USED FOR UNKNOWN INDICATION
     Route: 065
  4. REVLIMID [Suspect]
     Active Substance: LENALIDOMIDE
     Indication: PLASMA CELL MYELOMA
     Dosage: 15 MILLIGRAM
     Route: 048
     Dates: start: 20131008
  5. REVLIMID [Suspect]
     Active Substance: LENALIDOMIDE
     Dosage: 10 MILLIGRAM
     Route: 048
     Dates: start: 201609

REACTIONS (10)
  - Chest pain [Unknown]
  - Influenza [Unknown]
  - Mood swings [Unknown]
  - Chest discomfort [Unknown]
  - Abdominal distension [Unknown]
  - Inflammation [Unknown]
  - Hypertension [Unknown]
  - Upper respiratory tract infection [Unknown]
  - Blood urine present [Unknown]
  - Dysuria [Unknown]

NARRATIVE: CASE EVENT DATE: 2017
